FAERS Safety Report 9135518 (Version 3)
Quarter: 2013Q1

REPORT INFORMATION
  Report Type: Spontaneous
  Country: JP (occurrence: None)
  Receive Date: 20130221
  Receipt Date: 20130318
  Transmission Date: 20140127
  Serious: Yes (Death)
  Sender: FDA-Public Use
  Company Number: TCI2013A00871

PATIENT
  Age: 64 Year
  Sex: Male

DRUGS (3)
  1. SONIAS COMBINATION TABLETS LD (PIOGLITAZONE HYDROCHLORIDE, GLIMEPIRIDE) [Suspect]
     Indication: TYPE 2 DIABETES MELLITUS
     Route: 048
     Dates: start: 20121007, end: 20130112
  2. METGLUCO (METFORMIN HYDROCHLORIDE) [Concomitant]
  3. MICARDIS (TELMISARTAN) [Concomitant]

REACTIONS (1)
  - Death [None]
